FAERS Safety Report 6156388-7 (Version None)
Quarter: 2009Q2

REPORT INFORMATION
  Report Type: 
  Country: None (occurrence: None)
  Receive Date: 20090416
  Receipt Date: 20090406
  Transmission Date: 20091009
  Serious: Yes (Hospitalization, Other)
  Sender: FDA-Public Use
  Company Number: GB-RANBAXY-2008RR-16933

PATIENT
  Age: 73 Year
  Sex: Male

DRUGS (9)
  1. SIMVASTATIN [Suspect]
     Indication: HYPERCHOLESTEROLAEMIA
     Dosage: 40 MG, QD
     Route: 048
  2. SIMVASTATIN [Suspect]
     Indication: MYOCARDIAL ISCHAEMIA
  3. FUCIDINE CAP [Suspect]
     Indication: SINUS DISORDER
     Dosage: 750 MG, UNK
     Route: 048
  4. FUCIDINE CAP [Suspect]
     Indication: INFECTION
  5. FUCIDINE CAP [Suspect]
     Indication: DEFORMITY THORAX
  6. ASPIRIN [Concomitant]
     Route: 065
  7. OMEPRAZOLE [Concomitant]
     Dosage: 20 MG, UNK
     Route: 065
  8. ACETAMINOPHEN W/ CODEINE [Concomitant]
  9. SENNA [Concomitant]
     Indication: CONSTIPATION
     Dosage: 15 MG, UNK

REACTIONS (3)
  - DRUG INTERACTION [None]
  - MYOGLOBINURIA [None]
  - RHABDOMYOLYSIS [None]
